FAERS Safety Report 11359037 (Version 3)
Quarter: 2015Q3

REPORT INFORMATION
  Report Type: Spontaneous
  Country: BR (occurrence: BR)
  Receive Date: 20150807
  Receipt Date: 20150825
  Transmission Date: 20151125
  Serious: Yes (Other)
  Sender: FDA-Public Use
  Company Number: BR-GLAXOSMITHKLINE-BR2015GSK113330

PATIENT
  Age: 67 Year
  Sex: Male

DRUGS (1)
  1. COMBODART [Suspect]
     Active Substance: DUTASTERIDE\TAMSULOSIN
     Indication: PRODUCT USED FOR UNKNOWN INDICATION
     Dosage: UNK

REACTIONS (11)
  - Urinary retention [Unknown]
  - Dysentery [Unknown]
  - Diarrhoea [Unknown]
  - Urinary hesitation [Unknown]
  - Hyperhidrosis [Unknown]
  - Hypotension [Unknown]
  - Retching [Unknown]
  - Dizziness [Unknown]
  - Anxiety [Unknown]
  - Cold sweat [Unknown]
  - Nausea [Unknown]
